FAERS Safety Report 21071742 (Version 2)
Quarter: 2022Q3

REPORT INFORMATION
  Report Type: Spontaneous
  Country: US (occurrence: US)
  Receive Date: 20220712
  Receipt Date: 20220713
  Transmission Date: 20221027
  Serious: No
  Sender: FDA-Public Use
  Company Number: US-PFIZER INC-202200940816

PATIENT
  Age: 48 Year
  Sex: Female
  Weight: 54.43 kg

DRUGS (1)
  1. XANAX [Suspect]
     Active Substance: ALPRAZOLAM
     Dosage: 0.25 MG, (EVEN TOOK HALF OF A XANAX PILL, SO 0.25MG SO SHE TOOK THE OTHER HALF)

REACTIONS (6)
  - Nausea [Not Recovered/Not Resolved]
  - Diarrhoea [Unknown]
  - COVID-19 [Unknown]
  - Pallor [Unknown]
  - Insomnia [Unknown]
  - Headache [Unknown]
